FAERS Safety Report 8039111-0 (Version None)
Quarter: 2012Q1

REPORT INFORMATION
  Report Type: 
  Country: None (occurrence: None)
  Receive Date: 20120111
  Receipt Date: 20111212
  Transmission Date: 20120608
  Serious: Yes (Other)
  Sender: FDA-Public Use
  Company Number: US-AMGEN-USASP2011066021

PATIENT
  Age: 75 Year
  Sex: Male

DRUGS (20)
  1. ALLEGRA [Concomitant]
  2. FLONASE [Concomitant]
  3. VICODIN [Concomitant]
  4. ASPIRIN [Concomitant]
  5. METFORMIN HCL [Concomitant]
  6. LANTUS [Concomitant]
  7. PRILOSEC [Concomitant]
  8. ENBREL [Suspect]
     Indication: RHEUMATOID ARTHRITIS
     Dosage: 50 MG, QWK
     Dates: start: 20060101, end: 20111201
  9. GLYBURIDE [Concomitant]
  10. FERROUS SULFATE TAB [Concomitant]
  11. FOLIC ACID [Concomitant]
  12. PREVALITE [Concomitant]
  13. HYDROCHLOROTHIAZIDE [Concomitant]
  14. METOPROLOL SUCCINATE [Concomitant]
  15. CALTRATE                           /00751519/ [Concomitant]
  16. ENTOCORT EC [Concomitant]
  17. FISH OIL [Concomitant]
  18. COUMADIN [Concomitant]
  19. LISINOPRIL [Concomitant]
  20. METHOTREXATE [Concomitant]

REACTIONS (3)
  - METASTATIC MALIGNANT MELANOMA [None]
  - WEIGHT DECREASED [None]
  - BACK PAIN [None]
